FAERS Safety Report 8531796-5 (Version None)
Quarter: 2012Q3

REPORT INFORMATION
  Report Type: 
  Country: None (occurrence: None)
  Receive Date: 20120723
  Receipt Date: 20120717
  Transmission Date: 20120928
  Serious: Yes (Hospitalization)
  Sender: FDA-Public Use
  Company Number: US-ROXANE LABORATORIES, INC.-2012-RO-01565RO

PATIENT
  Sex: Male

DRUGS (4)
  1. DEXAMETHASONE [Suspect]
     Dosage: 8 MG
     Route: 048
  2. DEXAMETHASONE [Suspect]
     Indication: NERVE COMPRESSION
     Dosage: 24 MG
     Route: 048
     Dates: start: 20120630
  3. DEXAMETHASONE [Suspect]
     Dosage: 16 MG
     Route: 048
  4. DEXAMETHASONE [Suspect]
     Dosage: 4 MG
     Route: 048

REACTIONS (8)
  - INSOMNIA [None]
  - MOOD SWINGS [None]
  - CONSTIPATION [None]
  - MALAISE [None]
  - HEADACHE [None]
  - PANCREATITIS [None]
  - OESOPHAGITIS ULCERATIVE [None]
  - ANXIETY [None]
